FAERS Safety Report 6654316-9 (Version None)
Quarter: 2010Q1

REPORT INFORMATION
  Report Type: 
  Country: None (occurrence: None)
  Receive Date: 20100326
  Receipt Date: 20100315
  Transmission Date: 20100710
  Serious: Yes (Other)
  Sender: FDA-Public Use
  Company Number: US-JNJCH-2010006746

PATIENT
  Age: 45 Year
  Sex: Male
  Weight: 95.3 kg

DRUGS (2)
  1. BENADRYL ALLERGY DYE-FREE [Suspect]
     Indication: SEASONAL ALLERGY
     Dosage: TEXT:ONE SOFTGEL EVERY 8-10 HOURS
     Route: 048
     Dates: start: 20100311, end: 20100315
  2. DIOVAN HCT [Concomitant]
     Indication: HYPERTENSION
     Route: 048

REACTIONS (2)
  - BLOOD PRESSURE INCREASED [None]
  - VISUAL IMPAIRMENT [None]
